FAERS Safety Report 10169073 (Version 4)
Quarter: 2014Q3

REPORT INFORMATION
  Report Type: Other
  Country: PT (occurrence: PT)
  Receive Date: 20140513
  Receipt Date: 20140825
  Transmission Date: 20150326
  Serious: Yes (Life-Threatening, Hospitalization)
  Sender: FDA-Public Use
  Company Number: PT-VERTEX PHARMACEUTICALS INC-2014-002278

PATIENT
  Age: 42 Year
  Sex: Male
  Weight: 83 kg

DRUGS (12)
  1. VIREAD [Concomitant]
     Active Substance: TENOFOVIR DISOPROXIL FUMARATE
     Indication: HIV INFECTION
     Dosage: 245 MG, QD
     Route: 048
     Dates: start: 2006
  2. HYDROCORTISONE BUTYRATE. [Concomitant]
     Active Substance: HYDROCORTISONE BUTYRATE
     Indication: PSORIASIS
     Dosage: 1 DF, QD
     Route: 061
     Dates: start: 2011, end: 20140404
  3. COPEGUS [Concomitant]
     Active Substance: RIBAVIRIN
     Indication: HEPATITIS C VIRUS TEST POSITIVE
     Dosage: 1200 MG, QD
     Route: 048
     Dates: start: 20140109, end: 20140404
  4. FENOFIBRATE. [Concomitant]
     Active Substance: FENOFIBRATE
     Indication: DYSLIPIDAEMIA
     Dosage: 267 MG, QD
     Route: 048
  5. INCIVO [Suspect]
     Active Substance: TELAPREVIR
     Indication: HEPATITIS C VIRUS TEST POSITIVE
     Dosage: 1125 MG, BID
     Route: 048
     Dates: start: 20140109, end: 20140403
  6. PEGASYS [Suspect]
     Active Substance: PEGINTERFERON ALFA-2A
     Dosage: 180 ?G, QW
     Route: 058
     Dates: start: 20140430
  7. ETRIVEX SHAMPOO [Concomitant]
     Indication: PSORIASIS
     Dosage: 1 DF, QD
     Route: 061
     Dates: start: 2011
  8. COPEGUS [Concomitant]
     Active Substance: RIBAVIRIN
     Dosage: 1200 MG, QD
     Route: 048
     Dates: start: 20140410
  9. METFORMIN [Concomitant]
     Active Substance: METFORMIN HYDROCHLORIDE
     Indication: TYPE 2 DIABETES MELLITUS
     Dosage: 2000 MG, QD
     Route: 048
  10. PEGASYS [Suspect]
     Active Substance: PEGINTERFERON ALFA-2A
     Indication: HEPATITIS C VIRUS TEST POSITIVE
     Dosage: 180 ?G, QW
     Route: 058
     Dates: start: 20140109, end: 20140328
  11. INTELENCE [Concomitant]
     Active Substance: ETRAVIRINE
     Indication: HIV INFECTION
     Route: 048
     Dates: start: 20130522
  12. ISENTRESS [Concomitant]
     Active Substance: RALTEGRAVIR POTASSIUM
     Indication: HIV INFECTION
     Dosage: 400 MG, BID
     Route: 048
     Dates: start: 20100818

REACTIONS (10)
  - Erythrodermic psoriasis [Recovering/Resolving]
  - Off label use [Unknown]
  - Psoriasis [Recovered/Resolved]
  - Weight decreased [Recovering/Resolving]
  - Exfoliative rash [Recovering/Resolving]
  - Thirst [Fatal]
  - Dermatosis [Recovering/Resolving]
  - Arthralgia [Recovering/Resolving]
  - Blood glucose increased [Recovering/Resolving]
  - Pruritus generalised [Recovered/Resolved]

NARRATIVE: CASE EVENT DATE: 201401
